FAERS Safety Report 5624158-1 (Version None)
Quarter: 2008Q1

REPORT INFORMATION
  Report Type: 
  Country: None (occurrence: None)
  Receive Date: 20080208
  Receipt Date: 20080117
  Transmission Date: 20080703
  Serious: Yes (Other)
  Sender: FDA-Public Use
  Company Number: 200810291BCC

PATIENT
  Age: 65 Year
  Sex: Female
  Weight: 63.5036 kg

DRUGS (5)
  1. BAYER LOW DOSE ASPIRIN (ACETYLSALICYLIC ACID) (ACETYLSALICYLIC ACID) [Suspect]
     Indication: CARDIAC DISORDER
     Dosage: 81 MG, QD, ORAL
     Route: 048
     Dates: start: 20020101
  2. ONE A DAY CHOLESTEROL PLUS [Suspect]
     Indication: VITAMIN SUPPLEMENTATION
     Dosage: QD, ORAL
     Route: 048
     Dates: start: 20080116
  3. CALCIUM WITH VITAMIN D [Concomitant]
  4. PRAVASTATIN [Concomitant]
  5. BENADRYL ALLERGY + SINUS [DIPHENHYDR HCL, PSEUDOEPH HCL] [Concomitant]

REACTIONS (1)
  - HAEMATOCHEZIA [None]
